FAERS Safety Report 25243062 (Version 1)
Quarter: 2025Q2

REPORT INFORMATION
  Report Type: Spontaneous
  Country: CN (occurrence: CN)
  Receive Date: 20250428
  Receipt Date: 20250428
  Transmission Date: 20250716
  Serious: Yes (Hospitalization)
  Sender: ROCHE
  Company Number: CN-ROCHE-10000266552

PATIENT
  Age: 71 Year
  Sex: Male
  Weight: 50 kg

DRUGS (1)
  1. ATEZOLIZUMAB [Suspect]
     Active Substance: ATEZOLIZUMAB
     Indication: Hepatic cancer
     Dosage: DOSAGE 1.000000?DOSAGE UNIT BRANCH
     Route: 042
     Dates: start: 20250301, end: 20250321

REACTIONS (1)
  - Ascites [Unknown]

NARRATIVE: CASE EVENT DATE: 20250419
